FAERS Safety Report 16646818 (Version 2)
Quarter: 2019Q3

REPORT INFORMATION
  Report Type: Spontaneous
  Country: JP (occurrence: JP)
  Receive Date: 20190730
  Receipt Date: 20190830
  Transmission Date: 20191004
  Serious: Yes (Hospitalization, Other)
  Sender: FDA-Public Use
  Company Number: JP-PFIZER INC-2019270103

PATIENT
  Age: 65 Year
  Sex: Male

DRUGS (14)
  1. CRESTOR [Concomitant]
     Active Substance: ROSUVASTATIN CALCIUM
     Dosage: 2.5 MG, 1X/DAY
     Route: 048
     Dates: start: 20131023
  2. PARIET [Concomitant]
     Active Substance: RABEPRAZOLE SODIUM
     Dosage: 10 MG, 1X/DAY
     Route: 048
     Dates: start: 20131023
  3. PLAVIX [Concomitant]
     Active Substance: CLOPIDOGREL BISULFATE
     Dosage: 75 MG, 1X/DAY
     Route: 048
     Dates: start: 20131023, end: 20151001
  4. METHOTREXATE. [Suspect]
     Active Substance: METHOTREXATE
     Dosage: 12.5 MG, WEEKLY
     Route: 048
     Dates: start: 20110509, end: 20170710
  5. RHEUMATREX [Concomitant]
     Active Substance: METHOTREXATE SODIUM
     Dosage: 8 MG, WEEKLY
     Route: 048
     Dates: end: 20110215
  6. METHOTREXATE. [Suspect]
     Active Substance: METHOTREXATE
     Indication: RHEUMATOID ARTHRITIS
     Dosage: 10 MG, WEEKLY
     Route: 048
     Dates: start: 20110215, end: 20110509
  7. OPTIRAN [Concomitant]
     Active Substance: LIMAPROST
     Dosage: 5 UG, 3X/DAY
     Route: 048
     Dates: start: 20100608, end: 20131022
  8. PREDNISOLONE. [Concomitant]
     Active Substance: PREDNISOLONE
     Dosage: 2 MG, 1X/DAY
     Route: 048
     Dates: start: 20131106
  9. RINPRAL [Concomitant]
     Active Substance: EPERISONE
     Dosage: 50 MG, 3X/DAY
     Route: 048
     Dates: start: 20100608
  10. ADEFURONIC [Concomitant]
     Active Substance: DICLOFENAC SODIUM
     Dosage: 37.5 MG, 2X/DAY
     Route: 048
     Dates: start: 20100608, end: 20181120
  11. FOLIAMIN [Concomitant]
     Active Substance: FOLIC ACID
     Dosage: 5 MG, WEEKLY
     Route: 048
     Dates: start: 20100608, end: 20170710
  12. RIMATIL [Concomitant]
     Active Substance: BUCILLAMINE
     Dosage: 100 MG, UNK
     Route: 048
     Dates: start: 20100618, end: 20190514
  13. PREDNISOLONE. [Concomitant]
     Active Substance: PREDNISOLONE
     Dosage: 5 MG, 1X/DAY
     Route: 048
     Dates: start: 20100608, end: 20131105
  14. BAYASPIRIN [Concomitant]
     Active Substance: ASPIRIN
     Dosage: 100 MG, 1X/DAY
     Route: 048
     Dates: start: 20131023

REACTIONS (8)
  - Lymphoproliferative disorder [Recovered/Resolved]
  - Deep vein thrombosis [Unknown]
  - Peripheral arterial occlusive disease [Recovered/Resolved]
  - Venous stenosis [Unknown]
  - Oedema peripheral [Unknown]
  - Blood alkaline phosphatase increased [Unknown]
  - Blood lactate dehydrogenase increased [Unknown]
  - Gamma-glutamyltransferase increased [Unknown]

NARRATIVE: CASE EVENT DATE: 2013
